FAERS Safety Report 13694967 (Version 1)
Quarter: 2017Q2

REPORT INFORMATION
  Report Type: Spontaneous
  Country: RU (occurrence: RU)
  Receive Date: 20170627
  Receipt Date: 20170627
  Transmission Date: 20170830
  Serious: Yes (Hospitalization)
  Sender: FDA-Public Use
  Company Number: RU-ASTRAZENECA-2017SE65765

PATIENT
  Age: 66 Year
  Sex: Male
  Weight: 66 kg

DRUGS (1)
  1. SYMBICORT [Suspect]
     Active Substance: BUDESONIDE\FORMOTEROL FUMARATE DIHYDRATE
     Indication: ASTHMA
     Dosage: 160/4.5 MICROGRAMS (120 DOSES) 1 INHALATION 2 TIMES A DAY
     Route: 055

REACTIONS (3)
  - Dyspnoea [Recovered/Resolved]
  - Body temperature abnormal [Recovered/Resolved]
  - Blood pressure decreased [Recovered/Resolved]
